FAERS Safety Report 6546738-1 (Version None)
Quarter: 2010Q1

REPORT INFORMATION
  Report Type: 
  Country: None (occurrence: None)
  Receive Date: 20100122
  Receipt Date: 20100119
  Transmission Date: 20100710
  Serious: Yes (Hospitalization, Other)
  Sender: FDA-Public Use
  Company Number: FR-WYE-G01458408

PATIENT
  Sex: Male

DRUGS (1)
  1. ADVIL [Suspect]
     Dosage: ONE TABLET AS REQUIRED
     Route: 048
     Dates: end: 20070415

REACTIONS (6)
  - AUTOIMMUNE HEPATITIS [None]
  - CHOLANGITIS ACUTE [None]
  - CYTOLYTIC HEPATITIS [None]
  - HEPATIC FIBROSIS [None]
  - HEPATIC INFILTRATION EOSINOPHILIC [None]
  - PROTHROMBIN TIME RATIO DECREASED [None]
